FAERS Safety Report 22621857 (Version 1)
Quarter: 2023Q2

REPORT INFORMATION
  Report Type: Spontaneous
  Country: ES (occurrence: ES)
  Receive Date: 20230620
  Receipt Date: 20230620
  Transmission Date: 20230722
  Serious: Yes (Life-Threatening, Hospitalization, Other)
  Sender: FDA-Public Use
  Company Number: None

PATIENT
  Age: 42 Year
  Sex: Male

DRUGS (6)
  1. LAMOTRIGINE [Interacting]
     Active Substance: LAMOTRIGINE
     Indication: Product used for unknown indication
     Dosage: 2000 MG, 1 TOTAL (20 TABLETS OF 100MG (OVERDOSE))
     Route: 048
     Dates: start: 20230517, end: 20230517
  2. ZOLPIDEM [Interacting]
     Active Substance: ZOLPIDEM TARTRATE
     Indication: Product used for unknown indication
     Dosage: 100 MILLIGRAM, 1 TOTAL (10 TABLETS)
     Route: 048
     Dates: start: 20230517, end: 20230517
  3. VENLAFAXINE HYDROCHLORIDE [Interacting]
     Active Substance: VENLAFAXINE HYDROCHLORIDE
     Indication: Product used for unknown indication
     Dosage: 10 GRAM, 1 TOTAL (OVERDOSE 40 CAPSULE)
     Route: 048
     Dates: start: 20230517, end: 20230517
  4. VENLAFAXINE HYDROCHLORIDE [Concomitant]
     Active Substance: VENLAFAXINE HYDROCHLORIDE
     Indication: Mixed anxiety and depressive disorder
     Dosage: 225 MILLIGRAM, QD (24 HOURS)
     Route: 048
  5. ZOLPIDEM [Concomitant]
     Active Substance: ZOLPIDEM TARTRATE
     Indication: Mixed anxiety and depressive disorder
     Dosage: 10 MILLIGRAM, QD (24 HOURS)
     Route: 048
  6. LAMOTRIGINE [Concomitant]
     Active Substance: LAMOTRIGINE
     Indication: Mixed anxiety and depressive disorder
     Dosage: 100 MILLIGRAM, QD (24 HOURS)
     Route: 048

REACTIONS (6)
  - Rhabdomyolysis [Recovering/Resolving]
  - Pneumonia aspiration [Recovered/Resolved]
  - Coma [Recovered/Resolved]
  - Suicidal ideation [Unknown]
  - Drug interaction [Unknown]
  - Overdose [Unknown]

NARRATIVE: CASE EVENT DATE: 20230517
